FAERS Safety Report 23515811 (Version 3)
Quarter: 2024Q3

REPORT INFORMATION
  Report Type: Other
  Country: CA (occurrence: CA)
  Receive Date: 20240213
  Receipt Date: 20240822
  Transmission Date: 20241017
  Serious: Yes (Other)
  Sender: CELLTRION
  Company Number: CA-CELLTRION INC.-2024CA003185

PATIENT

DRUGS (3)
  1. BEVACIZUMAB [Suspect]
     Active Substance: BEVACIZUMAB
     Indication: Exudative retinopathy
     Dosage: INITIAL TREATMENT
  2. BEVACIZUMAB [Suspect]
     Active Substance: BEVACIZUMAB
     Dosage: ONE INJECTION OF BEVACIZUMAB POST-VITRECTOMY TO ADDRESS THE RETINAL EXUDATION
  3. BEVACIZUMAB [Suspect]
     Active Substance: BEVACIZUMAB
     Dosage: BEVACIZUMAB INJECTIONS EVERY 8 WEEKS SINCE EXUDATION WAS STILL PRESENT AND LEAKING IN THE PATHOLOGIC

REACTIONS (5)
  - Tractional retinal detachment [Recovered/Resolved]
  - Retinal tear [Recovering/Resolving]
  - Serous retinal detachment [Recovering/Resolving]
  - Off label use [Recovering/Resolving]
  - Drug effective for unapproved indication [Recovering/Resolving]
